FAERS Safety Report 11072518 (Version 4)
Quarter: 2015Q2

REPORT INFORMATION
  Report Type: Report from Study
  Country: PL (occurrence: PL)
  Receive Date: 20150428
  Receipt Date: 20150609
  Transmission Date: 20150821
  Serious: Yes (Life-Threatening, Hospitalization)
  Sender: FDA-Public Use
  Company Number: PL-AMGEN-POLCT2015040474

PATIENT
  Age: 74 Year
  Sex: Female
  Weight: 64 kg

DRUGS (8)
  1. DENOSUMAB [Suspect]
     Active Substance: DENOSUMAB
     Indication: OSTEOPOROSIS POSTMENOPAUSAL
     Dosage: UNK, UNK
     Route: 058
     Dates: start: 20140828, end: 20140828
  2. ZOCOR [Concomitant]
     Active Substance: SIMVASTATIN
     Dosage: 20 MG, UNK
     Route: 048
     Dates: start: 2005, end: 20150108
  3. ENARENAL [Concomitant]
     Active Substance: ENALAPRIL
     Dosage: 10 MG, UNK
     Route: 048
     Dates: start: 2005, end: 20150108
  4. PLACEBO [Suspect]
     Active Substance: UNSPECIFIED INGREDIENT
     Indication: OSTEOPOROSIS POSTMENOPAUSAL
     Dosage: UNK ML, UNK
     Route: 058
     Dates: start: 20130829, end: 20140728
  5. ATENOLOL. [Concomitant]
     Active Substance: ATENOLOL
     Dosage: 50 MG, UNK
     Route: 048
     Dates: start: 1995, end: 20150108
  6. CALCIUM [Concomitant]
     Active Substance: CALCIUM
     Dosage: 500 MG, UNK
     Route: 048
     Dates: start: 20130802, end: 20150108
  7. VITAMIN D                          /00107901/ [Concomitant]
     Active Substance: ERGOCALCIFEROL
     Dosage: 800 IU, UNK
     Route: 048
     Dates: start: 20130802, end: 20150108
  8. POLPRAZOL                          /00661201/ [Concomitant]
     Dosage: 20 MG, UNK
     Route: 048
     Dates: start: 2013, end: 20150108

REACTIONS (1)
  - Aortic valve stenosis [Recovered/Resolved]

NARRATIVE: CASE EVENT DATE: 20150109
